FAERS Safety Report 5228405-X (Version None)
Quarter: 2007Q1

REPORT INFORMATION
  Report Type: 
  Country: None (occurrence: None)
  Receive Date: 20070131
  Receipt Date: 20070124
  Transmission Date: 20070707
  Serious: Yes (Death, Life-Threatening, Hospitalization)
  Sender: FDA-Public Use
  Company Number: 128-20785-06090736

PATIENT
  Age: 79 Year
  Sex: Male

DRUGS (4)
  1. THALIDOMIDE [Suspect]
     Indication: MULTIPLE MYELOMA
     Dosage: 400 MG, 8 IN 1 D, ORAL
     Route: 048
     Dates: start: 20060623, end: 20060601
  2. ATORVASTATIN CALCIUM [Concomitant]
  3. LOSARTAN WITH HYDROCHLOROTHIAZIDE (HYZAAR) [Concomitant]
  4. VERAPAMIL [Concomitant]

REACTIONS (4)
  - CARDIO-RESPIRATORY ARREST [None]
  - METABOLIC ACIDOSIS [None]
  - PNEUMONIA [None]
  - RESPIRATORY FAILURE [None]
